FAERS Safety Report 4435204-5 (Version None)
Quarter: 2004Q3

REPORT INFORMATION
  Report Type: 
  Country: None (occurrence: None)
  Receive Date: 20040827
  Receipt Date: 20040820
  Transmission Date: 20050211
  Serious: Yes (Hospitalization)
  Sender: FDA-Public Use
  Company Number: GB-BRISTOL-MYERS SQUIBB COMPANY-12677894

PATIENT
  Age: 73 Year
  Sex: Male
  Weight: 67 kg

DRUGS (3)
  1. CISPLATIN [Suspect]
     Indication: BLADDER CANCER
     Dosage: THERAPY COMMENCED: 13-MAY-2004; CUMULATIVE DOSE: 250 MG
     Route: 042
     Dates: start: 20040513, end: 20040513
  2. PACLITAXEL [Suspect]
     Indication: BLADDER CANCER
     Dosage: THERAPY COMMENCED: 13-MAY-2004; CUMULATIVE DOSE: 576 MG
     Route: 042
     Dates: start: 20040513, end: 20040513
  3. GEMCITABINE [Suspect]
     Indication: BLADDER CANCER
     Dosage: THERAPY COMMENCED: 13-MAY-2004; CUMULATIVE DOSE: 7.144 GRAMS
     Route: 042
     Dates: start: 20040513, end: 20040513

REACTIONS (2)
  - ANOREXIA [None]
  - DIZZINESS [None]
